FAERS Safety Report 14742929 (Version 1)
Quarter: 2018Q2

REPORT INFORMATION
  Report Type: Report from Study
  Country: US (occurrence: US)
  Receive Date: 20180410
  Receipt Date: 20180410
  Transmission Date: 20180711
  Serious: Yes (Other)
  Sender: FDA-Public Use
  Company Number: US-ACTELION-A-NJ2018-170396

PATIENT
  Age: 40 Year
  Sex: Female
  Weight: 128.8 kg

DRUGS (2)
  1. OPSUMIT [Suspect]
     Active Substance: MACITENTAN
     Indication: PULMONARY HYPERTENSION
     Dosage: 10 MG, QD
     Route: 048
  2. SILDENAFIL CITRATE. [Concomitant]
     Active Substance: SILDENAFIL CITRATE

REACTIONS (5)
  - Hand fracture [Unknown]
  - Syncope [Unknown]
  - Fall [Unknown]
  - Blood potassium decreased [Unknown]
  - Catheterisation cardiac abnormal [Unknown]
